FAERS Safety Report 16239127 (Version 3)
Quarter: 2019Q4

REPORT INFORMATION
  Report Type: Spontaneous
  Country: US (occurrence: US)
  Receive Date: 20190425
  Receipt Date: 20191217
  Transmission Date: 20200122
  Serious: Yes (Hospitalization, Other)
  Sender: FDA-Public Use
  Company Number: US-PFIZER INC-2019174867

PATIENT
  Age: 69 Year
  Sex: Female

DRUGS (1)
  1. XELJANZ XR [Suspect]
     Active Substance: TOFACITINIB CITRATE
     Dosage: 11 MG, UNSPECIFIED FREQUENCY

REACTIONS (6)
  - Influenza [Unknown]
  - Haemorrhage [Unknown]
  - Infection [Unknown]
  - Malaise [Unknown]
  - Bronchitis [Unknown]
  - Wound [Unknown]

NARRATIVE: CASE EVENT DATE: 20190315
